FAERS Safety Report 10174075 (Version 1)
Quarter: 2014Q2

REPORT INFORMATION
  Report Type: Spontaneous
  Country: US (occurrence: US)
  Receive Date: 20140515
  Receipt Date: 20140515
  Transmission Date: 20141212
  Serious: No
  Sender: FDA-Public Use
  Company Number: US-009507513-1405USA004462

PATIENT
  Age: 12 Year
  Sex: Male

DRUGS (1)
  1. CLARITIN CHEWABLE TABLETS [Suspect]
     Indication: EYE PRURITUS
     Dosage: 5 MG, UNKNOWN
     Route: 048

REACTIONS (4)
  - Ocular hyperaemia [Unknown]
  - Rhinorrhoea [Unknown]
  - Nasal discomfort [Unknown]
  - Drug ineffective [Unknown]
